FAERS Safety Report 4896698-4 (Version None)
Quarter: 2006Q1

REPORT INFORMATION
  Report Type: 
  Country: None (occurrence: None)
  Receive Date: 20060131
  Receipt Date: 20060112
  Transmission Date: 20060701
  Serious: Yes (Other)
  Sender: FDA-Public Use
  Company Number: GB-SOLVAY-00206000318

PATIENT
  Age: 76 Year
  Sex: Female
  Weight: 63 kg

DRUGS (3)
  1. ATENOLOL [Concomitant]
     Indication: ILL-DEFINED DISORDER
     Dosage: DAILY DOSE: 50 MILLIGRAM(S)
     Route: 048
     Dates: start: 19961219
  2. COVERSYL [Suspect]
     Indication: HYPERTENSION
     Dosage: DAILY DOSE: 2 MILLIGRAM(S)
     Route: 048
     Dates: start: 20030731, end: 20051020
  3. AMILORIDE HCL [Concomitant]
     Indication: ILL-DEFINED DISORDER
     Dosage: DAILY DOSE: 5 MILLIGRAM(S)
     Route: 048
     Dates: start: 20030930, end: 20051031

REACTIONS (13)
  - ANOREXIA [None]
  - ANTINUCLEAR ANTIBODY POSITIVE [None]
  - BLOOD CREATININE INCREASED [None]
  - COUGH [None]
  - DEPRESSION [None]
  - DUODENAL ULCER [None]
  - DYSGEUSIA [None]
  - DYSPEPSIA [None]
  - MYOPATHY [None]
  - NAUSEA [None]
  - ORTHOSTATIC HYPOTENSION [None]
  - VISUAL DISTURBANCE [None]
  - WEIGHT DECREASED [None]
